FAERS Safety Report 8545612 (Version 5)
Quarter: 2012Q4

REPORT INFORMATION
  Report Type: Report from Study
  Country: CH (occurrence: CH)
  Receive Date: 20120503
  Receipt Date: 20121019
  Transmission Date: 20130627
  Serious: Yes (Hospitalization)
  Sender: FDA-Public Use
  Company Number: CH-ABBOTT-12P-151-0928291-00

PATIENT
  Age: 27 Year
  Sex: Female
  Weight: 67 kg

DRUGS (12)
  1. HUMIRA [Suspect]
     Indication: CROHN^S DISEASE
     Dosage: Baseline
     Route: 058
     Dates: start: 20120315, end: 20120315
  2. HUMIRA [Suspect]
     Dosage: Week 2
     Route: 058
  3. HUMIRA [Suspect]
     Route: 058
  4. PREDNISONE [Suspect]
     Indication: CROHN^S DISEASE
     Route: 048
     Dates: start: 20120315, end: 20120321
  5. PREDNISONE [Suspect]
     Route: 048
     Dates: start: 20120322, end: 20120328
  6. PREDNISONE [Suspect]
     Route: 048
     Dates: start: 20120329, end: 20120405
  7. PREDNISONE [Suspect]
     Route: 048
     Dates: start: 20120306, end: 20120412
  8. PREDNISONE [Suspect]
     Route: 048
     Dates: start: 20120413, end: 20120419
  9. PREDNISONE [Suspect]
     Route: 048
     Dates: start: 20120420
  10. SOLEVITA FORTE [Concomitant]
     Indication: NERVOUSNESS
     Dates: start: 201111
  11. BELARA [Concomitant]
     Indication: CONTRACEPTION
     Route: 048
     Dates: start: 20120322
  12. CIPROXIN [Concomitant]
     Indication: GASTROENTERITIS
     Route: 048
     Dates: start: 20120718, end: 20120725

REACTIONS (1)
  - Sepsis [Recovered/Resolved]
